FAERS Safety Report 9992907 (Version 1)
Quarter: 2014Q1

REPORT INFORMATION
  Report Type: Report from Study
  Country: US (occurrence: US)
  Receive Date: 20140310
  Receipt Date: 20140310
  Transmission Date: 20141002
  Serious: No
  Sender: FDA-Public Use
  Company Number: US-ABBVIE-13P-163-1102866-00

PATIENT
  Age: 33 Year
  Sex: Female

DRUGS (6)
  1. LUPRON DEPOT [Suspect]
     Indication: ENDOMETRIOSIS
     Dates: start: 20130315
  2. LEVOTHYROXINE [Suspect]
     Indication: THYROID DISORDER
  3. SINGULAIR [Concomitant]
     Indication: ASTHMA
  4. PROVENTIL [Concomitant]
     Indication: ASTHMA
     Route: 055
  5. CETIRIZINE [Concomitant]
     Indication: HYPERSENSITIVITY
  6. NORETHINDRONE ACETATE [Concomitant]
     Indication: PRODUCT USED FOR UNKNOWN INDICATION
     Dates: start: 20130315, end: 20130528

REACTIONS (3)
  - Vaginal haemorrhage [Not Recovered/Not Resolved]
  - Muscle spasms [Not Recovered/Not Resolved]
  - Abdominal distension [Recovering/Resolving]
